FAERS Safety Report 20611366 (Version 1)
Quarter: 2022Q1

REPORT INFORMATION
  Report Type: Spontaneous
  Country: US (occurrence: None)
  Receive Date: 20220318
  Receipt Date: 20220318
  Transmission Date: 20220423
  Serious: Yes (Hospitalization)
  Sender: FDA-Public Use
  Company Number: None

PATIENT
  Age: 66 Year
  Sex: Female

DRUGS (2)
  1. NUCALA [Suspect]
     Active Substance: MEPOLIZUMAB
     Indication: Asthma
     Dosage: INJECT 1 PEN UNDER THE SKIN (SUBCUTANEOUS INJECTION) EVERY 28 DAYS?
     Route: 058
     Dates: start: 20210514
  2. NUCALA [Suspect]
     Active Substance: MEPOLIZUMAB
     Dosage: OTHER QUANTITY : 1 PEN ;?OTHER FREQUENCY : EVERY 28 DAYS;?
     Route: 058

REACTIONS (1)
  - Surgery [None]

NARRATIVE: CASE EVENT DATE: 20220317
